FAERS Safety Report 26199606 (Version 1)
Quarter: 2025Q4

REPORT INFORMATION
  Report Type: Spontaneous
  Country: CN (occurrence: CN)
  Receive Date: 20251225
  Receipt Date: 20251225
  Transmission Date: 20260118
  Serious: Yes (Other)
  Sender: ROCHE
  Company Number: CN-ROCHE-10000463565

PATIENT
  Age: 59 Year
  Sex: Male

DRUGS (3)
  1. BEVACIZUMAB [Suspect]
     Active Substance: BEVACIZUMAB
     Indication: Rectal cancer
     Route: 041
     Dates: start: 20251119, end: 20251202
  2. TIPIRACIL HYDROCHLORIDE\TRIFLURIDINE [Concomitant]
     Active Substance: TIPIRACIL HYDROCHLORIDE\TRIFLURIDINE
  3. FULZERASIB [Concomitant]
     Active Substance: FULZERASIB

REACTIONS (5)
  - Hepatic failure [Recovering/Resolving]
  - Yellow skin [Recovering/Resolving]
  - Abdominal distension [Recovering/Resolving]
  - Decreased appetite [Recovering/Resolving]
  - Drug-induced liver injury [Recovering/Resolving]

NARRATIVE: CASE EVENT DATE: 20251202
